FAERS Safety Report 9054426 (Version 1)
Quarter: 2013Q1

REPORT INFORMATION
  Report Type: Spontaneous
  Country: US (occurrence: US)
  Receive Date: 20130208
  Receipt Date: 20130208
  Transmission Date: 20140127
  Serious: No
  Sender: FDA-Public Use
  Company Number: US-GLAXOSMITHKLINE-A0966052A

PATIENT
  Age: 56 Year
  Sex: Female

DRUGS (5)
  1. PAROXETINE [Suspect]
     Indication: WITHDRAWAL SYNDROME
     Dosage: 6MG UNKNOWN
     Route: 048
     Dates: start: 201007
  2. PAXIL [Suspect]
     Indication: ANXIETY
     Dosage: 20MG UNKNOWN
     Route: 048
     Dates: start: 200702
  3. PAXIL [Suspect]
     Indication: WITHDRAWAL SYNDROME
     Route: 048
     Dates: start: 200807
  4. ZOLOFT [Suspect]
     Indication: WITHDRAWAL SYNDROME
     Route: 065
  5. ATIVAN [Concomitant]

REACTIONS (12)
  - Dizziness [Not Recovered/Not Resolved]
  - Crying [Unknown]
  - Paraesthesia [Unknown]
  - Panic attack [Unknown]
  - Hyperventilation [Unknown]
  - Coordination abnormal [Unknown]
  - Gait disturbance [Unknown]
  - Agitation [Unknown]
  - Nightmare [Unknown]
  - Tremor [Unknown]
  - Confusional state [Unknown]
  - Memory impairment [Unknown]
